FAERS Safety Report 17575880 (Version 1)
Quarter: 2020Q1

REPORT INFORMATION
  Report Type: Spontaneous
  Country: FR (occurrence: FR)
  Receive Date: 20200324
  Receipt Date: 20200324
  Transmission Date: 20200409
  Serious: Yes (Hospitalization)
  Sender: FDA-Public Use
  Company Number: NVSC2020FR076811

PATIENT
  Age: 28 Year
  Sex: Female

DRUGS (3)
  1. SERESTA [Suspect]
     Active Substance: OXAZEPAM
     Indication: POISONING DELIBERATE
     Dosage: 2 DF, QD
     Route: 048
     Dates: start: 20170224, end: 20170224
  2. ATARAX [Suspect]
     Active Substance: HYDROXYZINE HYDROCHLORIDE
     Indication: POISONING DELIBERATE
     Dosage: 30 DF, QD
     Route: 048
     Dates: start: 20170224, end: 20170224
  3. PARACETAMOL [Suspect]
     Active Substance: ACETAMINOPHEN
     Indication: PRODUCT USED FOR UNKNOWN INDICATION
     Dosage: 4 G, QD
     Route: 048
     Dates: start: 20170224, end: 20170224

REACTIONS (2)
  - Toxicity to various agents [Recovered/Resolved]
  - Somnolence [Recovered/Resolved]

NARRATIVE: CASE EVENT DATE: 20170224
